FAERS Safety Report 11820343 (Version 1)
Quarter: 2015Q4

REPORT INFORMATION
  Report Type: Spontaneous
  Country: US (occurrence: US)
  Receive Date: 20151210
  Receipt Date: 20151210
  Transmission Date: 20160305
  Serious: Yes (Hospitalization, Other)
  Sender: FDA-Public Use
  Company Number: US-BAYER-2015-446199

PATIENT
  Age: 72 Year
  Sex: Male

DRUGS (21)
  1. ACETYLSALICYLIC ACID({=100 MG) [Suspect]
     Active Substance: ASPIRIN
     Indication: CHEST PAIN
  2. HYDROCHLOROTHIAZIDE. [Concomitant]
     Active Substance: HYDROCHLOROTHIAZIDE
     Dosage: 25 MG, UNK
     Route: 048
     Dates: start: 2009
  3. TIZANIDINE. [Concomitant]
     Active Substance: TIZANIDINE
     Dosage: UNK
     Route: 065
     Dates: start: 2009
  4. XARELTO [Suspect]
     Active Substance: RIVAROXABAN
     Indication: CEREBROVASCULAR ACCIDENT
     Dosage: 20 MG, QD
     Route: 048
     Dates: start: 20120918
  5. ACETYLSALICYLIC ACID({=100 MG) [Suspect]
     Active Substance: ASPIRIN
     Indication: CEREBROVASCULAR ACCIDENT
  6. ACETYLSALICYLIC ACID({=100 MG) [Suspect]
     Active Substance: ASPIRIN
     Indication: MYOCARDIAL INFARCTION
  7. POTASSIUM GLUCONATE [Concomitant]
     Active Substance: POTASSIUM GLUCONATE
     Dosage: 99 MG, UNK
     Route: 048
     Dates: start: 2009
  8. DONEPEZIL HYDROCHLORIDE. [Concomitant]
     Active Substance: DONEPEZIL HYDROCHLORIDE
     Dosage: UNK
     Route: 065
     Dates: start: 2009
  9. CRESTOR [Concomitant]
     Active Substance: ROSUVASTATIN CALCIUM
     Dosage: UNK
     Route: 065
     Dates: start: 2009
  10. XARELTO [Suspect]
     Active Substance: RIVAROXABAN
     Indication: ATRIAL FIBRILLATION
     Dosage: 15 MG, UNK
     Route: 048
  11. XARELTO [Suspect]
     Active Substance: RIVAROXABAN
     Indication: CEREBROVASCULAR ACCIDENT
     Dosage: 20 MG, QD
     Route: 048
     Dates: end: 20141113
  12. METOPROLOL TARTRATE. [Concomitant]
     Active Substance: METOPROLOL TARTRATE
     Dosage: UNK
     Route: 065
     Dates: start: 2009
  13. NYSTATIN. [Concomitant]
     Active Substance: NYSTATIN
     Dosage: UNK
     Route: 065
     Dates: start: 2009
  14. PRAVASTATIN SODIUM. [Concomitant]
     Active Substance: PRAVASTATIN SODIUM
     Dosage: UNK
     Route: 065
     Dates: start: 2009
  15. LISINOPRIL. [Concomitant]
     Active Substance: LISINOPRIL
     Dosage: UNK
     Route: 065
     Dates: start: 2009
  16. OMEPRAZOLE. [Concomitant]
     Active Substance: OMEPRAZOLE
     Dosage: UNK
     Route: 065
     Dates: start: 2009
  17. ACETYLSALICYLIC ACID({=100 MG) [Suspect]
     Active Substance: ASPIRIN
     Indication: ANTICOAGULANT THERAPY
     Dosage: UNK
     Route: 065
  18. MAGNESIUM OXIDE. [Concomitant]
     Active Substance: MAGNESIUM OXIDE
     Dosage: 400 MG, UNK
     Route: 048
     Dates: start: 2009
  19. PLAVIX [Suspect]
     Active Substance: CLOPIDOGREL BISULFATE
     Indication: ANTICOAGULANT THERAPY
     Dosage: UNK
     Route: 065
  20. DIAZEPAM. [Concomitant]
     Active Substance: DIAZEPAM
     Dosage: UNK
     Route: 065
     Dates: start: 2009
  21. ROPINIROLE. [Concomitant]
     Active Substance: ROPINIROLE
     Dosage: UNK
     Route: 065
     Dates: start: 2009

REACTIONS (3)
  - Gastrointestinal haemorrhage [Unknown]
  - Myocardial infarction [Unknown]
  - Internal haemorrhage [Unknown]

NARRATIVE: CASE EVENT DATE: 20140220
